FAERS Safety Report 25494268 (Version 1)
Quarter: 2025Q2

REPORT INFORMATION
  Report Type: Spontaneous
  Country: BR (occurrence: BR)
  Receive Date: 20250630
  Receipt Date: 20250630
  Transmission Date: 20250717
  Serious: Yes (Other)
  Sender: BIOGEN
  Company Number: BR-BIOGEN-2025BI01315377

PATIENT
  Sex: Female

DRUGS (1)
  1. TECFIDERA [Suspect]
     Active Substance: DIMETHYL FUMARATE
     Indication: Product used for unknown indication
     Dosage: 240, UNIT NOT INFORMED
     Route: 050
     Dates: start: 2020, end: 202501

REACTIONS (2)
  - Caesarean section [Recovered/Resolved]
  - Paternal exposure before pregnancy [Recovered/Resolved]

NARRATIVE: CASE EVENT DATE: 20230703
